FAERS Safety Report 9438945 (Version 2)
Quarter: 2013Q3

REPORT INFORMATION
  Report Type: Report from Study
  Country: MX (occurrence: MX)
  Receive Date: 20130802
  Receipt Date: 20130806
  Transmission Date: 20140515
  Serious: Yes (Other)
  Sender: FDA-Public Use
  Company Number: MX-ABBOTT-13P-107-1128734-00

PATIENT
  Age: 54 Year
  Sex: Male
  Weight: 73 kg

DRUGS (5)
  1. HUMIRA [Suspect]
     Indication: ANKYLOSING SPONDYLITIS
     Dosage: 40 MG/0.8 ML
     Route: 058
     Dates: start: 2006, end: 20130708
  2. LERCANIDIPINE [Concomitant]
     Indication: HYPERTENSION
     Route: 048
     Dates: start: 201201
  3. VILDAGLIPTIN/METFORMIN [Concomitant]
     Indication: DIABETES MELLITUS
     Dosage: 50/500MG
     Route: 048
     Dates: start: 201201
  4. OMEPRAZOLE [Concomitant]
     Indication: GASTRITIS
     Route: 048
     Dates: start: 2010
  5. MESALAZINE (SALOFALK) [Concomitant]
     Indication: CROHN^S DISEASE
     Route: 048
     Dates: start: 2012

REACTIONS (6)
  - Haemorrhage [Unknown]
  - Suture related complication [Unknown]
  - Gastrointestinal neoplasm [Unknown]
  - Crohn^s disease [Unknown]
  - Dermatitis infected [Recovering/Resolving]
  - Abdominal infection [Unknown]
